FAERS Safety Report 25806588 (Version 2)
Quarter: 2025Q4

REPORT INFORMATION
  Report Type: Spontaneous
  Country: EG (occurrence: EG)
  Receive Date: 20250916
  Receipt Date: 20251002
  Transmission Date: 20260117
  Serious: Yes (Death, Life-Threatening, Hospitalization, Other)
  Sender: HIKMA
  Company Number: EG-HIKMA PHARMACEUTICALS-EG-H14001-25-10356

PATIENT
  Age: 76 Year
  Sex: Male
  Weight: 58 kg

DRUGS (4)
  1. ALIMTA [Suspect]
     Active Substance: PEMETREXED DISODIUM
     Indication: Product used for unknown indication
     Dosage: 900 MILLIGRAM, 3W IN 100 ML NS OVER 10 MINUTES
     Route: 041
  2. ALIMTA [Suspect]
     Active Substance: PEMETREXED DISODIUM
     Dosage: 900 MILLIGRAM, 3W IN 100 ML NS OVER 10 MINUTES
     Route: 041
     Dates: start: 20250706
  3. CARBOPLATIN [Suspect]
     Active Substance: CARBOPLATIN
     Indication: Product used for unknown indication
     Dosage: 450 MILLIGRAM, 3W IN 500 ML GLUCOSE 5% OVER 1 HOUR
     Route: 041
  4. CARBOPLATIN [Suspect]
     Active Substance: CARBOPLATIN
     Dosage: 450 MILLIGRAM, 3W IN 500 ML GLUCOSE 5% OVER 1 HOUR DOSE 3
     Route: 041
     Dates: start: 20250706

REACTIONS (7)
  - Febrile neutropenia [Fatal]
  - Vomiting [Fatal]
  - Diarrhoea [Fatal]
  - Leukopenia [Fatal]
  - Thrombocytopenia [Fatal]
  - Hypochromic anaemia [Fatal]
  - Hypokalaemia [Fatal]

NARRATIVE: CASE EVENT DATE: 20250717
